FAERS Safety Report 18731403 (Version 6)
Quarter: 2023Q4

REPORT INFORMATION
  Report Type: Spontaneous
  Country: US (occurrence: US)
  Receive Date: 20210112
  Receipt Date: 20231218
  Transmission Date: 20240110
  Serious: No
  Sender: FDA-Public Use
  Company Number: US-PFIZER INC-2021011569

PATIENT
  Age: 49 Year
  Sex: Female
  Weight: 56.689 kg

DRUGS (6)
  1. IBRANCE [Suspect]
     Active Substance: PALBOCICLIB
     Indication: Breast cancer female
     Dosage: 21 DAYS ON AND 7 DAYS OFF
     Dates: start: 20201212
  2. IBRANCE [Suspect]
     Active Substance: PALBOCICLIB
     Indication: Breast cancer metastatic
     Dosage: 125 MG, ALTERNATE DAY
     Route: 048
  3. IBRANCE [Suspect]
     Active Substance: PALBOCICLIB
     Dosage: DAILY FOR 21 DAYS, THEN REST FOR 7 DAYS
  4. IBRANCE [Suspect]
     Active Substance: PALBOCICLIB
     Dosage: 21 DAYS ON 7 DAYS OFF
  5. VITAMIN D3 [Concomitant]
     Active Substance: CHOLECALCIFEROL
     Dosage: UNK
  6. ZOMETA [Concomitant]
     Active Substance: ZOLEDRONIC ACID
     Dosage: UNK

REACTIONS (10)
  - White blood cell count decreased [Not Recovered/Not Resolved]
  - Off label use [Unknown]
  - Abdominal distension [Recovered/Resolved]
  - Full blood count abnormal [Not Recovered/Not Resolved]
  - Cough [Recovered/Resolved]
  - Brain fog [Recovered/Resolved]
  - Nausea [Not Recovered/Not Resolved]
  - Exeresis [Recovered/Resolved]
  - Alopecia [Recovered/Resolved]
  - Lacrimation increased [Unknown]
